FAERS Safety Report 5906826-7 (Version None)
Quarter: 2008Q3

REPORT INFORMATION
  Report Type: 
  Country: None (occurrence: None)
  Receive Date: 20080929
  Receipt Date: 20080915
  Transmission Date: 20090109
  Serious: Yes (Hospitalization)
  Sender: FDA-Public Use
  Company Number: 2008BI007771

PATIENT
  Age: 68 Year
  Sex: Female

DRUGS (1)
  1. AVONEX [Suspect]
     Indication: MULTIPLE SCLEROSIS
     Dosage: 30 UG QW IM
     Route: 030
     Dates: start: 19991101

REACTIONS (5)
  - ASTHENIA [None]
  - DIVERTICULAR PERFORATION [None]
  - DIVERTICULITIS [None]
  - DYSSTASIA [None]
  - PAIN IN EXTREMITY [None]
